FAERS Safety Report 14905126 (Version 1)
Quarter: 2018Q2

REPORT INFORMATION
  Report Type: Spontaneous
  Country: US (occurrence: US)
  Receive Date: 20180517
  Receipt Date: 20180517
  Transmission Date: 20180711
  Serious: No
  Sender: FDA-Public Use
  Company Number: US-SA-2017SA221513

PATIENT
  Age: 62 Year
  Sex: Male

DRUGS (1)
  1. LANTUS [Suspect]
     Active Substance: INSULIN GLARGINE
     Indication: TYPE 2 DIABETES MELLITUS
     Dosage: DOSAGE: 40 Q AM AND ?35 Q PM DOSE:75 UNIT(S)
     Route: 058
     Dates: start: 2010

REACTIONS (3)
  - Product use issue [Unknown]
  - Hyperglycaemia [Unknown]
  - Drug ineffective [Unknown]
